FAERS Safety Report 21436767 (Version 2)
Quarter: 2022Q4

REPORT INFORMATION
  Report Type: Report from Study
  Country: US (occurrence: US)
  Receive Date: 20221010
  Receipt Date: 20221021
  Transmission Date: 20230112
  Serious: Yes (Hospitalization)
  Sender: FDA-Public Use
  Company Number: US-ABBVIE-22K-163-4499723-00

PATIENT
  Age: 54 Year
  Sex: Male

DRUGS (2)
  1. SKYRIZI [Suspect]
     Active Substance: RISANKIZUMAB-RZAA
     Indication: Psoriasis
     Route: 058
  2. SKYRIZI [Suspect]
     Active Substance: RISANKIZUMAB-RZAA
     Dosage: STRENGTH 150 MILLIGRAM
     Route: 058

REACTIONS (5)
  - Hospitalisation [Unknown]
  - Discomfort [Unknown]
  - Psoriasis [Recovering/Resolving]
  - Skin irritation [Unknown]
  - General symptom [Recovering/Resolving]

NARRATIVE: CASE EVENT DATE: 20220809
